FAERS Safety Report 7211502-7 (Version None)
Quarter: 2011Q1

REPORT INFORMATION
  Report Type: 
  Country: None (occurrence: None)
  Receive Date: 20110105
  Receipt Date: 20110103
  Transmission Date: 20110831
  Serious: Yes (Other)
  Sender: FDA-Public Use
  Company Number: BR-PFIZER INC-2011001134

PATIENT
  Sex: Female

DRUGS (2)
  1. DEPO-PROVERA [Suspect]
     Indication: OFF LABEL USE
     Dosage: 150 MG, EVERY 3 MONTHS
     Route: 030
     Dates: start: 20070101
  2. DEPO-PROVERA [Suspect]
     Indication: ENDOMETRIOSIS

REACTIONS (1)
  - HAEMORRHAGE [None]
